FAERS Safety Report 18702965 (Version 1)
Quarter: 2021Q1

REPORT INFORMATION
  Report Type: Report from Study
  Country: US (occurrence: US)
  Receive Date: 20210105
  Receipt Date: 20210105
  Transmission Date: 20210419
  Serious: Yes (Death)
  Sender: FDA-Public Use
  Company Number: US-PFIZER INC-2020520616

PATIENT
  Age: 73 Year
  Sex: Male
  Weight: 132.9 kg

DRUGS (3)
  1. INCB018424 [Suspect]
     Active Substance: RUXOLITINIB
     Indication: COVID-19
  2. NOREPINEPHRINE BITARTRATE. [Suspect]
     Active Substance: NOREPINEPHRINE BITARTRATE
     Dosage: UNK
     Route: 041
  3. INCB018424 [Suspect]
     Active Substance: RUXOLITINIB
     Indication: CYTOKINE STORM
     Dosage: 5 MG, BID, NASOGASTRIC
     Dates: start: 20201202, end: 20201208

REACTIONS (1)
  - Cardiac arrest [Fatal]

NARRATIVE: CASE EVENT DATE: 20201208
